FAERS Safety Report 14685370 (Version 1)
Quarter: 2018Q1

REPORT INFORMATION
  Report Type: Spontaneous
  Country: FR (occurrence: FR)
  Receive Date: 20180327
  Receipt Date: 20180327
  Transmission Date: 20180509
  Serious: Yes (Hospitalization)
  Sender: FDA-Public Use
  Company Number: FR-SA-2018SA084608

PATIENT
  Age: 59 Year
  Sex: Male

DRUGS (9)
  1. TAHOR [Concomitant]
     Active Substance: ATORVASTATIN CALCIUM
     Route: 065
     Dates: start: 20161002
  2. KARDEGIC [Suspect]
     Active Substance: ASPIRIN DL-LYSINE
     Route: 065
     Dates: start: 20170302
  3. ALDACTONE [Concomitant]
     Active Substance: SPIRONOLACTONE
     Route: 065
  4. PLAVIX [Suspect]
     Active Substance: CLOPIDOGREL BISULFATE
     Route: 048
     Dates: start: 20170302
  5. RAMIPRIL. [Concomitant]
     Active Substance: RAMIPRIL
     Route: 065
  6. DUOPLAVIN [Suspect]
     Active Substance: ASPIRIN\CLOPIDOGREL
     Route: 048
     Dates: start: 20170202, end: 20170302
  7. CORDARONE [Concomitant]
     Active Substance: AMIODARONE HYDROCHLORIDE
     Route: 065
     Dates: start: 20161002
  8. LANSOPRAZOLE. [Concomitant]
     Active Substance: LANSOPRAZOLE
     Route: 065
     Dates: start: 20161002
  9. LASILIX [Concomitant]
     Active Substance: FUROSEMIDE
     Route: 065
     Dates: start: 20160907, end: 20170319

REACTIONS (2)
  - Anaemia [Unknown]
  - Acute kidney injury [Not Recovered/Not Resolved]

NARRATIVE: CASE EVENT DATE: 20170227
